FAERS Safety Report 8094433 (Version 2)
Quarter: 2013Q2

REPORT INFORMATION
  Report Type: Report from Study
  Country: MX (occurrence: MX)
  Receive Date: 20110817
  Receipt Date: 20130620
  Transmission Date: 20140414
  Serious: Yes (Hospitalization)
  Sender: FDA-Public Use
  Company Number: PHHY2011MX72687

PATIENT
  Age: 64 Year
  Sex: Female

DRUGS (2)
  1. TEGRETOL 200 LC [Suspect]
     Indication: EPILEPSY
     Dosage: 2 DF, DAILY (200  MG)
     Route: 048
     Dates: start: 199408
  2. RIVOTRIL [Concomitant]
     Indication: EPILEPSY
     Dosage: 2 DF, DAILY
     Dates: start: 199408

REACTIONS (2)
  - Breast cancer [Not Recovered/Not Resolved]
  - Convulsion [Not Recovered/Not Resolved]
